FAERS Safety Report 5044792-X (Version None)
Quarter: 2006Q2

REPORT INFORMATION
  Report Type: 
  Country: None (occurrence: None)
  Receive Date: 20060601
  Receipt Date: 20060324
  Transmission Date: 20061013
  Serious: No
  Sender: FDA-Public Use
  Company Number: 2006-BP-00416BP(1)

PATIENT
  Age: 75 Year
  Sex: Male

DRUGS (3)
  1. SPIRIVA [Suspect]
     Indication: BRONCHITIS
     Dosage: 18 MCG (18 MCG, 1 CAPSULE A DAY), IH
     Route: 055
     Dates: start: 20051001
  2. SPIRIVA [Suspect]
  3. CORDURA (DOXAZOSIN) [Concomitant]

REACTIONS (1)
  - DYSGEUSIA [None]
